FAERS Safety Report 7683002-1 (Version None)
Quarter: 2011Q3

REPORT INFORMATION
  Report Type: 
  Country: None (occurrence: None)
  Receive Date: 20110812
  Receipt Date: 20110812
  Transmission Date: 20111222
  Serious: No
  Sender: FDA-Public Use
  Company Number: None

PATIENT
  Sex: Female
  Weight: 68.9467 kg

DRUGS (1)
  1. PRADAXA [Suspect]
     Dosage: 75MG AM + PM ABOUT 4 MONTHS

REACTIONS (1)
  - OEDEMA PERIPHERAL [None]
